FAERS Safety Report 6617483-9 (Version None)
Quarter: 2010Q1

REPORT INFORMATION
  Report Type: 
  Country: None (occurrence: None)
  Receive Date: 20100308
  Receipt Date: 20100225
  Transmission Date: 20100710
  Serious: Yes (Other)
  Sender: FDA-Public Use
  Company Number: US-JNJFOC-20100301523

PATIENT
  Sex: Female

DRUGS (3)
  1. TYLENOL-500 [Suspect]
  2. TYLENOL-500 [Suspect]
     Indication: DRUG USE FOR UNKNOWN INDICATION
  3. MAALOX [Concomitant]

REACTIONS (1)
  - CEREBROVASCULAR ACCIDENT [None]
